FAERS Safety Report 4695131-5 (Version None)
Quarter: 2005Q2

REPORT INFORMATION
  Report Type: 
  Country: None (occurrence: None)
  Receive Date: 20050617
  Receipt Date: 20050603
  Transmission Date: 20051028
  Serious: Yes (Hospitalization, Disabling)
  Sender: FDA-Public Use
  Company Number: 2005-0008178

PATIENT
  Age: 27 Year
  Sex: Male

DRUGS (3)
  1. TENOFOVIR DISOPROXIL FUMARATE (TENOFOVIR DISOPROXIL FUMARATE) [Suspect]
     Indication: HIV INFECTION
     Dosage: 150 MG, 2 IN 1 D)
     Dates: start: 20050302
  2. EFAVIRENZ [Suspect]
     Indication: HIV INFECTION
     Dosage: 600 MG, 1 IN 1 D
     Dates: start: 20050302
  3. AZT [Concomitant]

REACTIONS (9)
  - COUGH [None]
  - DIZZINESS [None]
  - FACIAL PALSY [None]
  - HEMIPLEGIA [None]
  - NAUSEA [None]
  - RHINORRHOEA [None]
  - TRANSIENT ISCHAEMIC ATTACK [None]
  - VASCULITIS [None]
  - VOMITING [None]
